FAERS Safety Report 11896662 (Version 1)
Quarter: 2016Q1

REPORT INFORMATION
  Report Type: Spontaneous
  Country: CH (occurrence: FI)
  Receive Date: 20160107
  Receipt Date: 20160107
  Transmission Date: 20160526
  Serious: Yes (Other)
  Sender: FDA-Public Use
  Company Number: CH-LPDUSPRD-20151074

PATIENT
  Age: 95 Year
  Sex: Female

DRUGS (1)
  1. FERINJECT [Suspect]
     Active Substance: FERRIC CARBOXYMALTOSE
     Dosage: 1000 MG IN 250 ML 0.9% NACL
     Route: 041
     Dates: start: 20151212

REACTIONS (4)
  - Respiratory rate decreased [Unknown]
  - Vein discolouration [Recovered/Resolved]
  - Vein disorder [Recovered/Resolved]
  - Chest pain [Unknown]

NARRATIVE: CASE EVENT DATE: 20151212
